FAERS Safety Report 7085977-0 (Version None)
Quarter: 2010Q4

REPORT INFORMATION
  Report Type: 
  Country: None (occurrence: None)
  Receive Date: 20101027
  Receipt Date: 20101012
  Transmission Date: 20110411
  Serious: Yes (Life-Threatening, Hospitalization)
  Sender: FDA-Public Use
  Company Number: 2008SP000692

PATIENT
  Age: 72 Year
  Sex: Male
  Weight: 69.4003 kg

DRUGS (10)
  1. BROVANA [Suspect]
     Indication: CHRONIC OBSTRUCTIVE PULMONARY DISEASE
     Dosage: 15 UG/2ML; BID; INHALATION
     Route: 055
     Dates: start: 20080228, end: 20080310
  2. DIGOXIN [Concomitant]
  3. ASPIRIN [Concomitant]
  4. LEXAPRO [Concomitant]
  5. ALLEGRA [Concomitant]
  6. PREDNISONE [Concomitant]
  7. DIAZEPAM [Concomitant]
  8. MAXAIR [Concomitant]
  9. ALBUTEROL [Concomitant]
  10. BUDESONIDE [Concomitant]

REACTIONS (18)
  - CHRONIC OBSTRUCTIVE PULMONARY DISEASE [None]
  - CONDITION AGGRAVATED [None]
  - DIZZINESS [None]
  - DOCUMENTED HYPERSENSITIVITY TO ADMINISTERED DRUG [None]
  - DRY MOUTH [None]
  - GASTROINTESTINAL HAEMORRHAGE [None]
  - HAEMOPTYSIS [None]
  - HAEMORRHAGE [None]
  - HEADACHE [None]
  - HYPOTENSION [None]
  - INSOMNIA [None]
  - LUNG NEOPLASM [None]
  - NAUSEA [None]
  - NERVOUSNESS [None]
  - PNEUMONIA [None]
  - TACHYCARDIA [None]
  - THROAT IRRITATION [None]
  - TREMOR [None]
